FAERS Safety Report 10481224 (Version 1)
Quarter: 2014Q3

REPORT INFORMATION
  Report Type: Spontaneous
  Country: US (occurrence: US)
  Receive Date: 20140929
  Receipt Date: 20140929
  Transmission Date: 20150326
  Serious: No
  Sender: FDA-Public Use
  Company Number: US-PFIZER INC-2014266275

PATIENT
  Age: 52 Year
  Sex: Female
  Weight: 61.22 kg

DRUGS (8)
  1. PREDNISONE. [Concomitant]
     Active Substance: PREDNISONE
     Indication: RHEUMATOID ARTHRITIS
     Dosage: UNK
     Route: 048
  2. REMICADE [Suspect]
     Active Substance: INFLIXIMAB
     Indication: RHEUMATOID ARTHRITIS
     Dosage: 650 MG, (1 IN 4 WEEK)
     Route: 042
     Dates: end: 2014
  3. LODINE [Concomitant]
     Active Substance: ETODOLAC
     Dosage: UNK
  4. LORATADINE. [Concomitant]
     Active Substance: LORATADINE
     Indication: PAIN
     Dosage: 7.5MG (1 AS NECESSARY)
     Route: 048
     Dates: start: 2014
  5. CELEBREX [Suspect]
     Active Substance: CELECOXIB
     Indication: RHEUMATOID ARTHRITIS
     Dosage: UNK
  6. SOMA [Concomitant]
     Active Substance: CARISOPRODOL
     Indication: PAIN
     Dosage: UNK
     Route: 048
  7. PLAQUENIL [Concomitant]
     Active Substance: HYDROXYCHLOROQUINE SULFATE
     Dosage: UNK
  8. REMICADE [Suspect]
     Active Substance: INFLIXIMAB
     Dosage: 350 MG, (1 IN 8 WEEK)
     Route: 042

REACTIONS (5)
  - Wound [Unknown]
  - Activities of daily living impaired [Unknown]
  - Nasopharyngitis [Unknown]
  - Malaise [Unknown]
  - Alopecia [Unknown]

NARRATIVE: CASE EVENT DATE: 201312
